FAERS Safety Report 8231061-X (Version None)
Quarter: 2012Q1

REPORT INFORMATION
  Report Type: 
  Country: None (occurrence: None)
  Receive Date: 20120323
  Receipt Date: 20120316
  Transmission Date: 20120608
  Serious: No
  Sender: FDA-Public Use
  Company Number: US-PFIZER INC-2012071199

PATIENT
  Sex: Female

DRUGS (3)
  1. LATANOPROST [Suspect]
     Dosage: UNK
  2. BRIMONIDINE TARTRATE [Suspect]
     Dosage: UNK
  3. AZITHROMYCIN [Suspect]
     Dosage: UNK

REACTIONS (2)
  - DRUG INEFFECTIVE [None]
  - SKIN DISCOLOURATION [None]
